FAERS Safety Report 22806714 (Version 2)
Quarter: 2023Q4

REPORT INFORMATION
  Report Type: Spontaneous
  Country: US (occurrence: US)
  Receive Date: 20230810
  Receipt Date: 20231011
  Transmission Date: 20240110
  Serious: Yes (Other)
  Sender: FDA-Public Use
  Company Number: US-SA-SAC20230809000286

PATIENT
  Age: 30 Year
  Sex: Female

DRUGS (1)
  1. DUPIXENT [Suspect]
     Active Substance: DUPILUMAB
     Dosage: 300 MG, FREQUENCY: OTHER
     Route: 058
     Dates: start: 202307, end: 2023

REACTIONS (10)
  - Neuropathy peripheral [Unknown]
  - Pain [Unknown]
  - Diarrhoea [Unknown]
  - Fibromyalgia [Unknown]
  - Frequent bowel movements [Unknown]
  - Condition aggravated [Unknown]
  - Swelling [Unknown]
  - Insomnia [Unknown]
  - Arthralgia [Unknown]
  - Rash [Unknown]
